FAERS Safety Report 12845471 (Version 2)
Quarter: 2018Q3

REPORT INFORMATION
  Report Type: Report from Study
  Country: JP (occurrence: JP)
  Receive Date: 20161013
  Receipt Date: 20180717
  Transmission Date: 20181010
  Serious: Yes (Hospitalization)
  Sender: FDA-Public Use
  Company Number: JP-AMGEN-JPNNI2016140677

PATIENT
  Age: 48 Year
  Sex: Male

DRUGS (19)
  1. DARBEPOETIN ALFA [Suspect]
     Active Substance: DARBEPOETIN ALFA
     Dosage: UNK
     Route: 042
     Dates: start: 20150817, end: 20160318
  2. EPOETIN ALFA [Suspect]
     Active Substance: ERYTHROPOIETIN
     Dosage: UNK
     Route: 042
     Dates: start: 20170612, end: 20170623
  3. EPOETIN ALFA [Suspect]
     Active Substance: ERYTHROPOIETIN
     Dosage: UNK
     Route: 042
     Dates: start: 20170626, end: 20170915
  4. DARBEPOETIN ALFA [Suspect]
     Active Substance: DARBEPOETIN ALFA
     Dosage: UNK
     Route: 042
     Dates: start: 20160328, end: 20160401
  5. ROCALTROL [Suspect]
     Active Substance: CALCITRIOL
     Indication: PRODUCT USED FOR UNKNOWN INDICATION
     Dosage: UNK
     Route: 042
     Dates: start: 20150601, end: 20150601
  6. ROCALTROL [Suspect]
     Active Substance: CALCITRIOL
     Dosage: UNK
     Route: 042
     Dates: start: 20151218, end: 20160509
  7. EPOETIN ALFA [Suspect]
     Active Substance: ERYTHROPOIETIN
     Dosage: UNK
     Route: 042
     Dates: start: 20171225, end: 20180108
  8. ROCALTROL [Suspect]
     Active Substance: CALCITRIOL
     Dosage: UNK
     Route: 042
     Dates: start: 20161207, end: 20170526
  9. ROCALTROL [Suspect]
     Active Substance: CALCITRIOL
     Dosage: UNK
     Route: 042
     Dates: start: 20170821
  10. DARBEPOETIN ALFA [Suspect]
     Active Substance: DARBEPOETIN ALFA
     Indication: PRODUCT USED FOR UNKNOWN INDICATION
     Dosage: UNK
     Route: 042
     Dates: start: 20150601, end: 20150814
  11. ROCALTROL [Suspect]
     Active Substance: CALCITRIOL
     Dosage: UNK
     Route: 042
     Dates: start: 20150601, end: 20151113
  12. EPOETIN ALFA [Suspect]
     Active Substance: ERYTHROPOIETIN
     Indication: PRODUCT USED FOR UNKNOWN INDICATION
     Dosage: UNK
     Route: 042
     Dates: start: 20160502, end: 20160513
  13. ROCALTROL [Suspect]
     Active Substance: CALCITRIOL
     Dosage: UNK
     Route: 042
     Dates: start: 20151116, end: 20151216
  14. ROCALTROL [Suspect]
     Active Substance: CALCITRIOL
     Dosage: UNK
     Route: 042
     Dates: start: 20160509, end: 20161205
  15. ROCALTROL [Suspect]
     Active Substance: CALCITRIOL
     Dosage: UNK
     Route: 042
     Dates: start: 20170529, end: 20170818
  16. EPOETIN ALFA [Suspect]
     Active Substance: ERYTHROPOIETIN
     Dosage: UNK
     Route: 042
     Dates: start: 20170918, end: 20171208
  17. REGPARA [Suspect]
     Active Substance: CINACALCET HYDROCHLORIDE
     Indication: PRODUCT USED FOR UNKNOWN INDICATION
     Dosage: UNK
     Route: 048
     Dates: start: 20151002, end: 20160603
  18. REGPARA [Suspect]
     Active Substance: CINACALCET HYDROCHLORIDE
     Dosage: UNK
     Route: 048
     Dates: start: 20160603
  19. REGPARA [Suspect]
     Active Substance: CINACALCET HYDROCHLORIDE
     Dosage: UNK
     Route: 048
     Dates: start: 20161128

REACTIONS (4)
  - Arteriovenous fistula site complication [Recovering/Resolving]
  - Aneurysm [Recovering/Resolving]
  - Arteriovenous fistula site complication [Recovering/Resolving]
  - Arteriovenous fistula site complication [Recovering/Resolving]

NARRATIVE: CASE EVENT DATE: 20160427
